FAERS Safety Report 21064291 (Version 3)
Quarter: 2023Q2

REPORT INFORMATION
  Report Type: Spontaneous
  Country: DE (occurrence: DE)
  Receive Date: 20220711
  Receipt Date: 20230627
  Transmission Date: 20230722
  Serious: Yes (Hospitalization, Other)
  Sender: FDA-Public Use
  Company Number: DE-NOVARTISPH-NVSC2022DE155930

PATIENT
  Age: 68 Year
  Sex: Female

DRUGS (4)
  1. CARBOPLATIN [Suspect]
     Active Substance: CARBOPLATIN
     Indication: Non-small cell lung cancer
     Dosage: 280 MG, Q3W
     Route: 042
     Dates: start: 20220609, end: 20220630
  2. OPDIVO [Suspect]
     Active Substance: NIVOLUMAB
     Indication: Non-small cell lung cancer
     Dosage: 360 MG, Q3W
     Route: 042
     Dates: start: 20220608, end: 20220720
  3. YERVOY [Suspect]
     Active Substance: IPILIMUMAB
     Indication: Non-small cell lung cancer
     Dosage: 47 MG, EVERY 6 WEEKS
     Route: 042
     Dates: start: 20220608, end: 20220608
  4. PREDNISOLONE [Concomitant]
     Active Substance: PREDNISOLONE
     Indication: Prophylaxis
     Dosage: UNK (PROPHYLAXE)
     Route: 065

REACTIONS (5)
  - Cachexia [Recovering/Resolving]
  - Dyspnoea at rest [Recovering/Resolving]
  - Urinary tract infection [Recovered/Resolved]
  - General physical health deterioration [Unknown]
  - Dyspnoea exertional [Recovering/Resolving]

NARRATIVE: CASE EVENT DATE: 20220616
